FAERS Safety Report 8806074 (Version 3)
Quarter: 2013Q1

REPORT INFORMATION
  Report Type: Report from Study
  Country: JP (occurrence: JP)
  Receive Date: 20120925
  Receipt Date: 20130116
  Transmission Date: 20140127
  Serious: Yes (Congenital Anomaly, Other)
  Sender: FDA-Public Use
  Company Number: JP-009507513-1209JPN009348

PATIENT
  Age: 66 Year
  Sex: Male
  Weight: 60 kg

DRUGS (9)
  1. PEGINTRON [Suspect]
     Indication: CHRONIC HEPATITIS C
     Dosage: 1.5 MICROGRAM PER KILOGRAM,DAILY DOSE UNKNOWN
     Route: 058
     Dates: start: 20120704, end: 20121211
  2. REBETOL [Suspect]
     Indication: CHRONIC HEPATITIS C
     Dosage: 600 MG, QD
     Route: 048
     Dates: start: 20120704, end: 20121211
  3. TELAVIC [Suspect]
     Indication: CHRONIC HEPATITIS C
     Dosage: 1500 MG, QD
     Route: 048
     Dates: start: 20120704, end: 20120925
  4. LIVALO [Concomitant]
     Indication: HYPERLIPIDAEMIA
     Dosage: 2 MG, QD FORMULATION:POR
     Route: 048
  5. EPADEL S [Concomitant]
     Indication: HYPERLIPIDAEMIA
     Dosage: 1800 MG, QD FORMULATION:POR
     Route: 048
  6. FEROTYM [Concomitant]
     Indication: IRON DEFICIENCY ANAEMIA
     Dosage: 50 MG, QD FORMULATION:POR
     Route: 048
  7. CLARITIN REDITABS TABLETS 10 MG [Concomitant]
     Indication: PROPHYLAXIS
     Dosage: 10 MG, QD POR
     Route: 048
  8. AMLODIPINE [Concomitant]
     Indication: HYPERTENSION
     Dosage: 5 MG, QD POR
     Route: 048
  9. OMEPRAZOLE [Concomitant]
     Indication: GASTROOESOPHAGEAL REFLUX DISEASE
     Dosage: 10 MG, QD POR
     Route: 048

REACTIONS (4)
  - Anaemia [Not Recovered/Not Resolved]
  - Rash [Not Recovered/Not Resolved]
  - Anaemia [Not Recovered/Not Resolved]
  - Anaemia [Not Recovered/Not Resolved]
